FAERS Safety Report 9496747 (Version 1)
Quarter: 2013Q3

REPORT INFORMATION
  Report Type: Spontaneous
  Country: US (occurrence: None)
  Receive Date: 20130903
  Receipt Date: 20130903
  Transmission Date: 20140515
  Serious: Yes (Other)
  Sender: FDA-Public Use
  Company Number: None

PATIENT
  Age: 54 Year
  Sex: Male
  Weight: 95.26 kg

DRUGS (18)
  1. METOPROL TARTRATE [Suspect]
     Indication: BLOOD PRESSURE
     Dosage: 25 MG 2X PILL FORM
  2. METOPROL TARTRATE [Suspect]
     Indication: CARDIAC DISORDER
     Dosage: 25 MG 2X PILL FORM
  3. ATORVASTATIN [Suspect]
     Indication: BLOOD CHOLESTEROL
     Dosage: 40MG 1 BEDTIME PILL FORM
  4. PRISTIQ [Suspect]
     Indication: BIPOLAR DISORDER
     Dosage: 1 ONCE DAILY PILL FORM
  5. VIFEDIPINE [Concomitant]
  6. GABAPANTIN [Concomitant]
  7. LISINOPRIL [Concomitant]
  8. ZETIA [Concomitant]
  9. RANITIDINE [Concomitant]
  10. GEMFIBROZIL [Concomitant]
  11. GLIMEPRIDE [Concomitant]
  12. C [Concomitant]
  13. D CALCIUM MAGNEZIUM [Concomitant]
  14. E [Concomitant]
  15. IORN SUPPLEMENTS [Concomitant]
  16. CENTRUM [Concomitant]
  17. B COMPLEX [Concomitant]
  18. FISH OIL [Concomitant]

REACTIONS (1)
  - Acne [None]
